FAERS Safety Report 5127414-9 (Version None)
Quarter: 2006Q4

REPORT INFORMATION
  Report Type: 
  Country: None (occurrence: None)
  Receive Date: 20061013
  Receipt Date: 20061013
  Transmission Date: 20070319
  Serious: Yes (Life-Threatening)
  Sender: FDA-Public Use
  Company Number: None

PATIENT

DRUGS (1)
  1. LEVAQUIN [Suspect]
     Indication: URINARY TRACT INFECTION
     Dosage: 500MG  1 TABLET  ORAL
     Route: 048
     Dates: start: 20061010

REACTIONS (4)
  - ANAPHYLACTIC REACTION [None]
  - HYPOAESTHESIA ORAL [None]
  - SWELLING FACE [None]
  - THROAT TIGHTNESS [None]
